FAERS Safety Report 8780792 (Version 3)
Quarter: 2012Q4

REPORT INFORMATION
  Report Type: Report from Study
  Country: DE (occurrence: DE)
  Receive Date: 20120913
  Receipt Date: 20121011
  Transmission Date: 20130627
  Serious: Yes (Death)
  Sender: FDA-Public Use
  Company Number: DE-ABBOTT-12P-062-0978887-00

PATIENT
  Age: 88 Year
  Sex: Male

DRUGS (3)
  1. TRENANTONE [Suspect]
     Indication: PROSTATE CANCER
     Route: 058
     Dates: start: 20120118
  2. ASS [Concomitant]
     Indication: PRODUCT USED FOR UNKNOWN INDICATION
     Route: 065
  3. BICALUTAMIDE [Concomitant]
     Indication: PROSTATE CANCER
     Route: 065

REACTIONS (1)
  - Prostate cancer [Fatal]
